FAERS Safety Report 10771833 (Version 1)
Quarter: 2015Q1

REPORT INFORMATION
  Report Type: Spontaneous
  Country: US (occurrence: US)
  Receive Date: 20150206
  Receipt Date: 20150206
  Transmission Date: 20150721
  Serious: Yes (Hospitalization)
  Sender: FDA-Public Use
  Company Number: PHHY2015US013933

PATIENT
  Age: 29 Year
  Sex: Female

DRUGS (6)
  1. CLOZAPINE. [Suspect]
     Active Substance: CLOZAPINE
     Dosage: 225 MG, BID
     Route: 048
  2. ATIVAN [Concomitant]
     Active Substance: LORAZEPAM
     Indication: SCHIZOPHRENIA
     Route: 065
  3. BENZTROPINE [Concomitant]
     Active Substance: BENZTROPINE
     Indication: SCHIZOPHRENIA
     Route: 065
  4. OLANZAPINE. [Concomitant]
     Active Substance: OLANZAPINE
     Indication: SCHIZOPHRENIA
     Route: 065
  5. BROMOCRIPTINE [Concomitant]
     Active Substance: BROMOCRIPTINE
     Indication: SCHIZOPHRENIA
     Route: 065
  6. CLOZAPINE. [Suspect]
     Active Substance: CLOZAPINE
     Indication: SCHIZOPHRENIA
     Dosage: 100 MG, TID
     Route: 048

REACTIONS (10)
  - Constipation [Recovering/Resolving]
  - Sleep disorder [Recovering/Resolving]
  - Metabolic acidosis [Recovering/Resolving]
  - Gastrointestinal necrosis [Recovering/Resolving]
  - Vomiting [Recovering/Resolving]
  - Faecaloma [Recovering/Resolving]
  - Gastrointestinal hypomotility [Recovering/Resolving]
  - Ileus [Recovering/Resolving]
  - Intestinal ischaemia [Unknown]
  - Loss of consciousness [Recovering/Resolving]
